FAERS Safety Report 21907683 (Version 1)
Quarter: 2023Q1

REPORT INFORMATION
  Report Type: Spontaneous
  Country: AT (occurrence: AT)
  Receive Date: 20230125
  Receipt Date: 20230125
  Transmission Date: 20230418
  Serious: Yes (Other)
  Sender: FDA-Public Use
  Company Number: None

PATIENT
  Age: 33 Year
  Sex: Female

DRUGS (5)
  1. TACROLIMUS [Suspect]
     Active Substance: TACROLIMUS
     Indication: Graft versus host disease
  2. IMATINIB [Suspect]
     Active Substance: IMATINIB
     Indication: Prophylaxis against transplant rejection
  3. SIROLIMUS [Suspect]
     Active Substance: SIROLIMUS
     Indication: Prophylaxis against transplant rejection
  4. CYCLOSPORINE [Suspect]
     Active Substance: CYCLOSPORINE
     Indication: Graft versus host disease
  5. RITUXIMAB [Suspect]
     Active Substance: RITUXIMAB
     Indication: Graft versus host disease

REACTIONS (5)
  - Scleroderma [Recovered/Resolved]
  - Disease progression [Recovered/Resolved]
  - Drug ineffective [Unknown]
  - Skin mass [Unknown]
  - Joint range of motion decreased [Recovered/Resolved]
